FAERS Safety Report 15821346 (Version 1)
Quarter: 2019Q1

REPORT INFORMATION
  Report Type: Spontaneous
  Country: CA (occurrence: CA)
  Receive Date: 20190114
  Receipt Date: 20190114
  Transmission Date: 20190417
  Serious: Yes (Other)
  Sender: FDA-Public Use
  Company Number: CA-AMGEN-CANSP2018178269

PATIENT
  Age: 70 Year
  Sex: Male
  Weight: 83 kg

DRUGS (5)
  1. LOSEC [Concomitant]
     Active Substance: OMEPRAZOLE
     Indication: HYPERCHOLESTEROLAEMIA
     Dosage: 20 MG, QD
  2. HCTZ [Concomitant]
     Active Substance: HYDROCHLOROTHIAZIDE
     Indication: HYPERTENSION
     Dosage: 25 MG, QD
  3. REPATHA [Suspect]
     Active Substance: EVOLOCUMAB
     Indication: HYPERLIPIDAEMIA
  4. REPATHA [Suspect]
     Active Substance: EVOLOCUMAB
     Indication: PRODUCT USED FOR UNKNOWN INDICATION
     Dosage: 50 MG, Q2WK
     Route: 030
     Dates: start: 20181113
  5. REPATHA [Suspect]
     Active Substance: EVOLOCUMAB
     Indication: TYPE IIA HYPERLIPIDAEMIA

REACTIONS (7)
  - Oropharyngeal pain [Recovered/Resolved]
  - Head discomfort [Unknown]
  - Off label use [Unknown]
  - Respiratory tract congestion [Unknown]
  - Lower respiratory tract infection [Recovered/Resolved]
  - Back pain [Unknown]
  - Musculoskeletal pain [Unknown]

NARRATIVE: CASE EVENT DATE: 20181113
